FAERS Safety Report 8011020-2 (Version None)
Quarter: 2011Q4

REPORT INFORMATION
  Report Type: 
  Country: None (occurrence: None)
  Receive Date: 20111228
  Receipt Date: 20111219
  Transmission Date: 20120403
  Serious: Yes (Other)
  Sender: FDA-Public Use
  Company Number: GB-ELI_LILLY_AND_COMPANY-GB201112005025

PATIENT
  Age: 49 Year
  Sex: Female
  Weight: 60 kg

DRUGS (3)
  1. FLUOXETINE [Suspect]
     Indication: DEPRESSION
     Dosage: UNK
     Dates: start: 20110901
  2. TOLTERODINE TARTRATE [Concomitant]
     Indication: BLADDER IRRITATION
     Dosage: 4 MG, QD
     Route: 048
     Dates: start: 20111018, end: 20111019
  3. CLARITHROMYCIN [Concomitant]
     Indication: LOWER RESPIRATORY TRACT INFECTION

REACTIONS (5)
  - EPILEPSY [None]
  - DRUG INTERACTION [None]
  - POLLAKIURIA [None]
  - ROAD TRAFFIC ACCIDENT [None]
  - LOWER RESPIRATORY TRACT INFECTION [None]
